FAERS Safety Report 17449498 (Version 1)
Quarter: 2020Q1

REPORT INFORMATION
  Report Type: Spontaneous
  Country: GB (occurrence: GB)
  Receive Date: 20200224
  Receipt Date: 20200224
  Transmission Date: 20200409
  Serious: Yes (Other)
  Sender: FDA-Public Use
  Company Number: GB-GLAXOSMITHKLINE-GB2020027415

PATIENT
  Sex: Male

DRUGS (1)
  1. UMECLIDINIUM BROMIDE [Suspect]
     Active Substance: UMECLIDINIUM BROMIDE
     Indication: CHRONIC OBSTRUCTIVE PULMONARY DISEASE
     Dosage: (WHILST SEEBRI OUT OF STOCK)
     Route: 055
     Dates: start: 20200107, end: 20200129

REACTIONS (2)
  - Blood urine present [Unknown]
  - Testicular swelling [Unknown]

NARRATIVE: CASE EVENT DATE: 20200127
